FAERS Safety Report 25213405 (Version 1)
Quarter: 2025Q2

REPORT INFORMATION
  Report Type: Spontaneous
  Country: US (occurrence: None)
  Receive Date: 20250417
  Receipt Date: 20250417
  Transmission Date: 20250716
  Serious: No
  Sender: FDA-CTU
  Company Number: None

PATIENT
  Age: 69 Year
  Sex: Male
  Weight: 64 kg

DRUGS (1)
  1. APIXABAN [Suspect]
     Active Substance: APIXABAN
     Indication: Atrial fibrillation
     Dosage: FREQUENCY : TWICE A DAY;?
     Route: 048

REACTIONS (4)
  - Pulmonary embolism [None]
  - Emphysema [None]
  - Pneumonitis chemical [None]
  - Brain natriuretic peptide increased [None]

NARRATIVE: CASE EVENT DATE: 20250322
